FAERS Safety Report 7311242-X (Version None)
Quarter: 2011Q1

REPORT INFORMATION
  Report Type: 
  Country: None (occurrence: None)
  Receive Date: 20110119
  Receipt Date: 20100914
  Transmission Date: 20110831
  Serious: Yes (Hospitalization)
  Sender: FDA-Public Use
  Company Number: A-NJ2010-39466

PATIENT
  Age: 42 Year
  Sex: Female

DRUGS (11)
  1. LASIX [Concomitant]
  2. PRINIVIL [Concomitant]
  3. POTASSIUM CHLORIDE [Concomitant]
  4. ADVAIR DISKUS 100/50 [Concomitant]
  5. METHOTREXATE [Concomitant]
  6. PREDNISONE TAB [Concomitant]
  7. TRACLEER [Suspect]
     Indication: PULMONARY ARTERIAL HYPERTENSION
     Dosage: 125 MG, BID, ORAL, 62.5 MG, BID, ORAL
     Route: 048
     Dates: start: 20100801
  8. TRACLEER [Suspect]
     Indication: PULMONARY ARTERIAL HYPERTENSION
     Dosage: 125 MG, BID, ORAL, 62.5 MG, BID, ORAL
     Route: 048
     Dates: start: 20100601, end: 20100801
  9. INSULIN (INSULIN) [Concomitant]
  10. ALDACTONE [Concomitant]
  11. DIGOXIN [Concomitant]

REACTIONS (3)
  - DYSPNOEA [None]
  - FLUID OVERLOAD [None]
  - PULMONARY ARTERIAL HYPERTENSION [None]
